FAERS Safety Report 6460425-X (Version None)
Quarter: 2009Q4

REPORT INFORMATION
  Report Type: 
  Country: None (occurrence: None)
  Receive Date: 20091130
  Receipt Date: 20091125
  Transmission Date: 20100525
  Serious: Yes (Death, Hospitalization)
  Sender: FDA-Public Use
  Company Number: ES-ROCHE-658832

PATIENT
  Sex: Female
  Weight: 50 kg

DRUGS (4)
  1. CAPECITABINE [Suspect]
     Dosage: THERAPY PERMANENTLY DISCONTINUED
     Route: 048
     Dates: start: 20090915, end: 20090922
  2. DOCETAXEL [Suspect]
     Dosage: FORM-INFUSION
     Route: 042
     Dates: start: 20090915, end: 20090915
  3. OXALIPLATIN [Suspect]
     Dosage: FORM-INFUSION
     Route: 042
     Dates: start: 20090915, end: 20090915
  4. ENOXAPARIN SODIUM [Concomitant]
     Route: 058
     Dates: end: 20090929

REACTIONS (1)
  - RENAL FAILURE [None]
